FAERS Safety Report 9337452 (Version 1)
Quarter: 2013Q2

REPORT INFORMATION
  Report Type: Spontaneous
  Country: AU (occurrence: AU)
  Receive Date: 20130607
  Receipt Date: 20130607
  Transmission Date: 20140414
  Serious: Yes (Hospitalization, Other)
  Sender: FDA-Public Use
  Company Number: AU-009507513-1306AUS001573

PATIENT
  Age: 44 Year
  Sex: Male

DRUGS (8)
  1. RIBAVIRIN [Suspect]
     Indication: LIVER DISORDER
     Dosage: 1800 MG, QD
     Route: 048
     Dates: start: 20121123
  2. PEGASYS [Suspect]
     Indication: LIVER DISORDER
     Dosage: 135 MICROGRAM, QD
     Route: 058
     Dates: start: 20121123
  3. ANTENEX [Concomitant]
  4. LEXAPRO [Concomitant]
  5. LYRICA [Concomitant]
  6. OXAZEPAM [Concomitant]
  7. TRAMADOL HYDROCHLORIDE [Concomitant]
  8. ZYPREXA [Concomitant]

REACTIONS (4)
  - Pancreatitis [Recovered/Resolved]
  - Dizziness [Unknown]
  - Abdominal pain [Unknown]
  - Drug dose omission [Unknown]
